FAERS Safety Report 17088421 (Version 1)
Quarter: 2019Q4

REPORT INFORMATION
  Report Type: Spontaneous
  Country: US (occurrence: US)
  Receive Date: 20191128
  Receipt Date: 20191128
  Transmission Date: 20200122
  Serious: Yes (Disabling, Other)
  Sender: FDA-Public Use
  Company Number: US-SA-2019SA323325

PATIENT
  Age: 94 Year
  Sex: Female

DRUGS (1)
  1. ZANTAC 150 (RANITIDINE HYDROCHLORIDE) [Suspect]
     Active Substance: RANITIDINE HYDROCHLORIDE
     Dosage: 150 MG, BID
     Route: 065

REACTIONS (7)
  - Hypoacusis [Unknown]
  - Fall [Unknown]
  - Impaired driving ability [Unknown]
  - Eye disorder [Unknown]
  - Retinal haemorrhage [Unknown]
  - Metamorphopsia [Unknown]
  - Memory impairment [Unknown]
